FAERS Safety Report 6807442-5 (Version None)
Quarter: 2010Q2

REPORT INFORMATION
  Report Type: 
  Country: None (occurrence: None)
  Receive Date: 20100629
  Receipt Date: 20080919
  Transmission Date: 20101027
  Serious: Yes (Other)
  Sender: FDA-Public Use
  Company Number: US-PFIZER INC-2008080967

PATIENT
  Sex: Female
  Weight: 55.454 kg

DRUGS (1)
  1. SPIRONOLACTONE [Suspect]
     Indication: ACNE
     Dosage: DAILY EVERY DAY
     Dates: start: 20080101

REACTIONS (4)
  - CONSTIPATION [None]
  - CYST [None]
  - MENSTRUATION IRREGULAR [None]
  - RASH MACULAR [None]
